FAERS Safety Report 25173219 (Version 1)
Quarter: 2025Q2

REPORT INFORMATION
  Report Type: Spontaneous
  Country: US (occurrence: US)
  Receive Date: 20250408
  Receipt Date: 20250408
  Transmission Date: 20250717
  Serious: No
  Sender: ELI LILLY AND CO
  Company Number: US-ELI_LILLY_AND_COMPANY-US202503005255

PATIENT
  Age: 71 Year
  Sex: Female

DRUGS (7)
  1. BASAGLAR [Suspect]
     Active Substance: INSULIN GLARGINE
     Indication: Type 1 diabetes mellitus
     Dosage: UNK UNK, BID
     Route: 065
     Dates: start: 2022
  2. BASAGLAR [Suspect]
     Active Substance: INSULIN GLARGINE
     Indication: Type 1 diabetes mellitus
     Dosage: UNK UNK, BID
     Route: 065
     Dates: start: 2022
  3. BASAGLAR [Suspect]
     Active Substance: INSULIN GLARGINE
     Dosage: 20 U, EACH MORNING
     Route: 065
     Dates: start: 2022
  4. BASAGLAR [Suspect]
     Active Substance: INSULIN GLARGINE
     Dosage: 20 U, EACH MORNING
     Route: 065
     Dates: start: 2022
  5. BASAGLAR [Suspect]
     Active Substance: INSULIN GLARGINE
     Dosage: 17 U, EACH EVENING (16-17 UNITS AT NIGHT)
     Route: 065
     Dates: start: 2022
  6. BASAGLAR [Suspect]
     Active Substance: INSULIN GLARGINE
     Dosage: 17 U, EACH EVENING (16-17 UNITS AT NIGHT)
     Route: 065
     Dates: start: 2022
  7. APIDRA [Suspect]
     Active Substance: INSULIN GLULISINE
     Indication: Product used for unknown indication
     Route: 065

REACTIONS (2)
  - Blood glucose increased [Unknown]
  - Off label use [Not Recovered/Not Resolved]

NARRATIVE: CASE EVENT DATE: 20250403
